FAERS Safety Report 9285967 (Version 2)
Quarter: 2013Q4

REPORT INFORMATION
  Report Type: Spontaneous
  Country: US (occurrence: US)
  Receive Date: 20130513
  Receipt Date: 20131105
  Transmission Date: 20140711
  Serious: Yes (Hospitalization)
  Sender: FDA-Public Use
  Company Number: US-BAYER-2013-057208

PATIENT
  Age: 21 Year
  Sex: Female

DRUGS (6)
  1. YAZ [Suspect]
     Dosage: UNK
     Dates: start: 2000, end: 2002
  2. YASMIN [Suspect]
     Dosage: UNK
     Dates: start: 2000, end: 2002
  3. OCELLA [Suspect]
     Dosage: UNK
     Dates: start: 2000, end: 2002
  4. ACETAMINOPHEN [Concomitant]
     Dosage: UNK
     Dates: start: 20030715
  5. PROVERA [Concomitant]
  6. CIPRO [Concomitant]

REACTIONS (8)
  - Pulmonary embolism [Recovered/Resolved]
  - Pain [None]
  - Abdominal pain [None]
  - Injury [Recovered/Resolved]
  - General physical health deterioration [Recovered/Resolved]
  - Anxiety [None]
  - Emotional distress [None]
  - Pain [Recovered/Resolved]
